FAERS Safety Report 4522373-1 (Version None)
Quarter: 2004Q4

REPORT INFORMATION
  Report Type: 
  Country: None (occurrence: None)
  Receive Date: 20041209
  Receipt Date: 20041201
  Transmission Date: 20050328
  Serious: Yes (Other)
  Sender: FDA-Public Use
  Company Number: JP-GLAXOSMITHKLINE-B0359066A

PATIENT
  Age: 52 Year
  Sex: Male

DRUGS (1)
  1. VALTREX [Suspect]
     Indication: HERPES ZOSTER
     Dosage: 500MG TWICE PER DAY
     Route: 048
     Dates: start: 20041116, end: 20041118

REACTIONS (3)
  - DISORIENTATION [None]
  - HALLUCINATION [None]
  - NERVOUS SYSTEM DISORDER [None]
